FAERS Safety Report 4829289-1 (Version None)
Quarter: 2005Q4

REPORT INFORMATION
  Report Type: 
  Country: None (occurrence: None)
  Receive Date: 20051028
  Receipt Date: 20050727
  Transmission Date: 20060501
  Serious: No
  Sender: FDA-Public Use
  Company Number: COT_0170_2005

PATIENT
  Age: 61 Year
  Sex: Male

DRUGS (13)
  1. VENTAVIS [Suspect]
     Indication: PULMONARY HYPERTENSION
     Dosage: 5 MCG 6XD IH
     Route: 055
  2. TRACLEER [Concomitant]
  3. ULTRACET [Concomitant]
  4. AVAPRO [Concomitant]
  5. CAMPRAL [Concomitant]
  6. ELAVIL [Concomitant]
  7. SYNTHROID [Concomitant]
  8. PREDNISONE [Concomitant]
  9. ENBREL [Concomitant]
  10. PROZAC [Concomitant]
  11. METHOCARBAMATE [Concomitant]
  12. NEURONTIN [Concomitant]
  13. NORVASC [Concomitant]

REACTIONS (1)
  - GLOSSODYNIA [None]
